FAERS Safety Report 8457697-9 (Version None)
Quarter: 2012Q2

REPORT INFORMATION
  Report Type: 
  Country: None (occurrence: None)
  Receive Date: 20120618
  Receipt Date: 20120618
  Transmission Date: 20120825
  Serious: No
  Sender: FDA-Public Use
  Company Number: None

PATIENT
  Sex: Female

DRUGS (1)
  1. HYDROXYZINE [Suspect]
     Indication: INSOMNIA
     Dosage: 50MG HS PO
     Route: 048
     Dates: start: 20120613

REACTIONS (3)
  - NASAL DRYNESS [None]
  - HEADACHE [None]
  - DRY MOUTH [None]
